FAERS Safety Report 6907045-8 (Version None)
Quarter: 2010Q3

REPORT INFORMATION
  Report Type: 
  Country: None (occurrence: None)
  Receive Date: 20100804
  Receipt Date: 20081028
  Transmission Date: 20110219
  Serious: No
  Sender: FDA-Public Use
  Company Number: US-PFIZER INC-2008091688

PATIENT
  Age: 52 Year

DRUGS (4)
  1. NARDIL [Suspect]
     Indication: DEPRESSION
     Route: 048
  2. PROVIGIL [Interacting]
     Indication: NARCOLEPSY
     Route: 048
     Dates: start: 20070701, end: 20081007
  3. CARAFATE [Concomitant]
  4. KLONOPIN [Concomitant]

REACTIONS (2)
  - CHEST PAIN [None]
  - DRUG INTERACTION [None]
